FAERS Safety Report 7875936-X (Version None)
Quarter: 2011Q4

REPORT INFORMATION
  Report Type: 
  Country: None (occurrence: None)
  Receive Date: 20111031
  Receipt Date: 20111017
  Transmission Date: 20120403
  Serious: Yes (Other)
  Sender: FDA-Public Use
  Company Number: JP-ROCHE-1007069

PATIENT
  Sex: Female

DRUGS (1)
  1. TAMIFLU [Suspect]
     Indication: INFLUENZA
     Route: 064
     Dates: start: 20091120, end: 20091124

REACTIONS (3)
  - NEONATAL ASPHYXIA [None]
  - ECZEMA [None]
  - MATERNAL EXPOSURE DURING PREGNANCY [None]
